FAERS Safety Report 17481721 (Version 6)
Quarter: 2022Q3

REPORT INFORMATION
  Report Type: Report from Study
  Country: JP (occurrence: JP)
  Receive Date: 20200302
  Receipt Date: 20220713
  Transmission Date: 20221027
  Serious: Yes (Hospitalization, Other)
  Sender: FDA-Public Use
  Company Number: JP-GSKPMS-204524-0180-004

PATIENT

DRUGS (18)
  1. MEPOLIZUMAB [Suspect]
     Active Substance: MEPOLIZUMAB
     Indication: Asthma
     Dosage: 100MG EVERY 4 WEEKS
     Route: 058
     Dates: start: 20181108, end: 20181108
  2. MEPOLIZUMAB [Suspect]
     Active Substance: MEPOLIZUMAB
     Dosage: 100 MG, QD
     Route: 058
     Dates: start: 20181204, end: 20181204
  3. MEPOLIZUMAB [Suspect]
     Active Substance: MEPOLIZUMAB
     Dosage: 100 MG, QD
     Route: 058
     Dates: start: 20190104, end: 20190104
  4. MEPOLIZUMAB [Suspect]
     Active Substance: MEPOLIZUMAB
     Dosage: 100MG EVERY 4 WEEKS
     Route: 058
     Dates: start: 20190130, end: 20190130
  5. MEPOLIZUMAB [Suspect]
     Active Substance: MEPOLIZUMAB
     Dosage: 100MG EVERY 4 WEEKS
     Route: 058
     Dates: start: 20190227, end: 20190227
  6. MEPOLIZUMAB [Suspect]
     Active Substance: MEPOLIZUMAB
     Dosage: 100MG EVERY 4 WEEKS
     Route: 058
     Dates: start: 20190327, end: 20190327
  7. MEPOLIZUMAB [Suspect]
     Active Substance: MEPOLIZUMAB
     Dosage: 100MG EVERY 4 WEEKS
     Route: 058
     Dates: start: 20190424, end: 20190424
  8. MEPOLIZUMAB [Suspect]
     Active Substance: MEPOLIZUMAB
     Dosage: 100MG EVERY 4 WEEKS
     Route: 058
     Dates: start: 20190522, end: 20190522
  9. MEPOLIZUMAB [Suspect]
     Active Substance: MEPOLIZUMAB
     Dosage: 100MG EVERY 4 WEEKS
     Route: 058
     Dates: start: 20190619, end: 20190619
  10. MEPOLIZUMAB [Suspect]
     Active Substance: MEPOLIZUMAB
     Dosage: 100MG EVERY 4 WEEKS
     Route: 058
     Dates: start: 20190717, end: 20190717
  11. MEPOLIZUMAB [Suspect]
     Active Substance: MEPOLIZUMAB
     Dosage: 100MG EVERY 4 WEEKS
     Route: 058
     Dates: start: 20190814, end: 20190814
  12. MEPOLIZUMAB [Suspect]
     Active Substance: MEPOLIZUMAB
     Dosage: 100MG EVERY 4 WEEKS
     Route: 058
     Dates: start: 20190911, end: 20190911
  13. MEPOLIZUMAB [Suspect]
     Active Substance: MEPOLIZUMAB
     Dosage: 100MG EVERY 4 WEEKS
     Route: 058
     Dates: start: 20200115
  14. MEPOLIZUMAB [Suspect]
     Active Substance: MEPOLIZUMAB
     Dosage: 100MG EVERY 4 WEEKS
     Route: 058
     Dates: start: 20200408, end: 20200408
  15. MEPOLIZUMAB [Suspect]
     Active Substance: MEPOLIZUMAB
     Dosage: 100MG EVERY 4 WEEKS
     Route: 058
     Dates: start: 20200507, end: 20200507
  16. MYONAL [Concomitant]
     Dosage: UNK
  17. SYMBICORT [Concomitant]
     Active Substance: BUDESONIDE\FORMOTEROL FUMARATE DIHYDRATE
     Indication: Asthma
     Dosage: UNK
  18. PROCATEROL HYDROCHLORIDE [Concomitant]
     Active Substance: PROCATEROL HYDROCHLORIDE
     Indication: Asthma
     Dosage: UNK

REACTIONS (2)
  - Myasthenia gravis [Recovering/Resolving]
  - Diplopia [Recovering/Resolving]

NARRATIVE: CASE EVENT DATE: 20190214
